FAERS Safety Report 6180078-8 (Version None)
Quarter: 2009Q2

REPORT INFORMATION
  Report Type: 
  Country: None (occurrence: None)
  Receive Date: 20090505
  Receipt Date: 20080211
  Transmission Date: 20091009
  Serious: No
  Sender: FDA-Public Use
  Company Number: GB-BAYER-200717058NA

PATIENT
  Age: 75 Year
  Sex: Male

DRUGS (4)
  1. SOTALOL HYDROCHLORIDE [Suspect]
  2. ACETYLSALICYLIC ACID [Suspect]
  3. PARACETAMOL [Suspect]
  4. AMLODIPINE [Suspect]

REACTIONS (5)
  - ATRIOVENTRICULAR BLOCK FIRST DEGREE [None]
  - BLOOD PRESSURE DIASTOLIC DECREASED [None]
  - BRADYCARDIA [None]
  - DEATH [None]
  - OVERDOSE [None]
